FAERS Safety Report 11093518 (Version 2)
Quarter: 2015Q2

REPORT INFORMATION
  Report Type: Spontaneous
  Country: JP (occurrence: JP)
  Receive Date: 20150506
  Receipt Date: 20150517
  Transmission Date: 20150821
  Serious: No
  Sender: FDA-Public Use
  Company Number: JP-009507513-1505JPN000257

PATIENT
  Age: 75 Year

DRUGS (3)
  1. DEPAS [Concomitant]
     Active Substance: ETIZOLAM
     Dosage: DAILY DOSE UNKNOWN
     Route: 048
     Dates: start: 201504
  2. BELSOMRA [Suspect]
     Active Substance: SUVOREXANT
     Indication: INSOMNIA
     Dosage: 15 MG, QD
     Route: 048
     Dates: start: 20150415
  3. LENDORMIN [Concomitant]
     Active Substance: BROTIZOLAM
     Dosage: DAILY DOSE UNKNOWN
     Route: 048
     Dates: start: 201504

REACTIONS (1)
  - Initial insomnia [Recovered/Resolved]

NARRATIVE: CASE EVENT DATE: 201504
